FAERS Safety Report 6651971-4 (Version None)
Quarter: 2010Q1

REPORT INFORMATION
  Report Type: 
  Country: None (occurrence: None)
  Receive Date: 20100325
  Receipt Date: 20100317
  Transmission Date: 20100710
  Serious: Yes (Life-Threatening)
  Sender: FDA-Public Use
  Company Number: JP-JNJFOC-20100305205

PATIENT
  Sex: Male

DRUGS (4)
  1. CRAVIT [Suspect]
     Indication: GASTROENTERITIS
     Route: 048
  2. GOREISAN [Concomitant]
     Indication: GASTROENTERITIS
     Route: 048
  3. GLORIAMIN [Concomitant]
     Indication: GASTROENTERITIS
     Route: 048
  4. SESDEN [Concomitant]
     Indication: GASTROENTERITIS
     Route: 048

REACTIONS (1)
  - SHOCK [None]
